FAERS Safety Report 16198606 (Version 1)
Quarter: 2019Q2

REPORT INFORMATION
  Report Type: Spontaneous
  Country: GB (occurrence: GB)
  Receive Date: 20190415
  Receipt Date: 20190415
  Transmission Date: 20190711
  Serious: Yes (Other)
  Sender: FDA-Public Use
  Company Number: GB-JUBILANT CADISTA PHARMACEUTICALS-2019JUB00139

PATIENT
  Age: 67 Year
  Sex: Female

DRUGS (7)
  1. CANDESARTAN. [Concomitant]
     Active Substance: CANDESARTAN
     Dosage: 24 MG, 1X/DAY
     Route: 065
  2. SPIRONOLACTONE. [Concomitant]
     Active Substance: SPIRONOLACTONE
     Dosage: 25 MG, 1X/DAY
     Route: 065
  3. VALSARTAN AND SACUBITRIL [Suspect]
     Active Substance: SACUBITRIL\VALSARTAN
     Dosage: 51/49 MG BID
     Route: 065
  4. MEXILETINE [Suspect]
     Active Substance: MEXILETINE
     Dosage: 600 MG, 1X/DAY
     Route: 065
  5. CARVEDILOL. [Concomitant]
     Active Substance: CARVEDILOL
     Dosage: 50 MG, 1X/DAY
     Route: 065
  6. MEXILETINE [Suspect]
     Active Substance: MEXILETINE
     Dosage: 900 MG
     Route: 065
  7. CANDESARTAN. [Concomitant]
     Active Substance: CANDESARTAN
     Dosage: 32 MG, 1X/DAY
     Route: 065

REACTIONS (2)
  - Ventricular tachycardia [Recovered/Resolved]
  - Drug interaction [Recovered/Resolved]
